FAERS Safety Report 5888299-6 (Version None)
Quarter: 2008Q3

REPORT INFORMATION
  Report Type: 
  Country: None (occurrence: None)
  Receive Date: 20080918
  Receipt Date: 20080909
  Transmission Date: 20090109
  Serious: Yes (Death)
  Sender: FDA-Public Use
  Company Number: DE-ROCHE-570477

PATIENT
  Sex: Male

DRUGS (6)
  1. PEGASYS [Suspect]
     Indication: HEPATITIS B
     Route: 065
     Dates: start: 20070201, end: 20080101
  2. LACTULOSE [Concomitant]
  3. ALDACTONE [Concomitant]
  4. FURORESE [Concomitant]
  5. PRIMAXIN [Concomitant]
  6. STAPHYLEX [Concomitant]

REACTIONS (1)
  - HEPATIC NEOPLASM MALIGNANT [None]
